FAERS Safety Report 7021449-7 (Version None)
Quarter: 2010Q3

REPORT INFORMATION
  Report Type: 
  Country: None (occurrence: None)
  Receive Date: 20100929
  Receipt Date: 20100921
  Transmission Date: 20110219
  Serious: Yes (Hospitalization)
  Sender: FDA-Public Use
  Company Number: US-ELI_LILLY_AND_COMPANY-US201009006224

PATIENT
  Sex: Female

DRUGS (19)
  1. HUMULIN 70/30 [Suspect]
     Indication: TYPE 2 DIABETES MELLITUS
     Dosage: 40 U, EACH MORNING
  2. HUMULIN 70/30 [Suspect]
     Dosage: 18 U, EACH EVENING
  3. HUMULIN 70/30 [Suspect]
     Dosage: 20 U, EACH EVENING
  4. HUMULIN 70/30 [Suspect]
     Dosage: 40 U, EACH MORNING
  5. HUMULIN 70/30 [Suspect]
     Dosage: 18 U, EACH EVENING
  6. HUMULIN 70/30 [Suspect]
     Dosage: 20 U, EACH EVENING
  7. LISINOPRIL [Concomitant]
     Dosage: 20 MG, UNK
  8. ZOCOR [Concomitant]
     Dosage: 40 MG, UNK
  9. TOPAMAX [Concomitant]
     Dosage: 100 MG, UNK
  10. LASIX [Concomitant]
     Dosage: 40 MG, UNK
  11. PREDNISONE [Concomitant]
  12. CLONIDINE [Concomitant]
     Dosage: 0.5 MG, EACH MORNING
  13. CLONIDINE [Concomitant]
     Dosage: 1 MG, EACH EVENING
  14. NEURONTIN [Concomitant]
     Dosage: 200 MG, EACH MORNING
  15. NEURONTIN [Concomitant]
     Dosage: 100 MG, EACH EVENING
  16. NEURONTIN [Concomitant]
     Dosage: 300 MG, DAILY (1/D)
  17. PIROXICAM [Concomitant]
     Dosage: 20 MG, UNK
  18. FIORICET [Concomitant]
     Dosage: 325 MG, UNK
  19. GLUCOPHAGE [Concomitant]

REACTIONS (4)
  - FALL [None]
  - MEMORY IMPAIRMENT [None]
  - UNEVALUABLE EVENT [None]
  - VISUAL ACUITY REDUCED [None]
